FAERS Safety Report 12931362 (Version 1)
Quarter: 2016Q4

REPORT INFORMATION
  Report Type: Spontaneous
  Country: US (occurrence: US)
  Receive Date: 20161110
  Receipt Date: 20161110
  Transmission Date: 20170207
  Serious: No
  Sender: FDA-Public Use
  Company Number: US-JAZZ-2016-US-018084

PATIENT
  Sex: Male

DRUGS (41)
  1. CELEBREX [Concomitant]
     Active Substance: CELECOXIB
  2. BUMETANIDE. [Concomitant]
     Active Substance: BUMETANIDE
  3. FLUOXETINE HCL [Concomitant]
     Active Substance: FLUOXETINE HYDROCHLORIDE
  4. CARVEDILOL. [Concomitant]
     Active Substance: CARVEDILOL
  5. PRAVASTATIN SODIUM. [Concomitant]
     Active Substance: PRAVASTATIN SODIUM
  6. CALCIUM CARBONATE. [Concomitant]
     Active Substance: CALCIUM CARBONATE
  7. GABAPENTIN. [Concomitant]
     Active Substance: GABAPENTIN
  8. CENTRUM ULTRA [Concomitant]
  9. DEXTROAMPHETAMINE. [Concomitant]
     Active Substance: DEXTROAMPHETAMINE
  10. MULTI VITAMIN [Concomitant]
     Active Substance: VITAMINS
  11. OCUVITE [Concomitant]
     Active Substance: VITAMINS
  12. SYSTANE BALANCE [Concomitant]
     Active Substance: PROPYLENE GLYCOL
  13. VITAMIN D3 [Concomitant]
     Active Substance: CHOLECALCIFEROL
  14. MIACALCIN [Concomitant]
     Active Substance: CALCITONIN SALMON
  15. XYREM [Suspect]
     Active Substance: SODIUM OXYBATE
     Dosage: 4.5 G, BID
     Route: 048
     Dates: start: 200402
  16. CYMBALTA [Suspect]
     Active Substance: DULOXETINE HYDROCHLORIDE
     Indication: PRODUCT USED FOR UNKNOWN INDICATION
     Dosage: UNKNOWN DOSE
     Dates: start: 20160726
  17. PRAMIPEXOLE. [Concomitant]
     Active Substance: PRAMIPEXOLE
  18. PROCTOZONE HC [Concomitant]
     Active Substance: HYDROCORTISONE
  19. XYREM [Suspect]
     Active Substance: SODIUM OXYBATE
     Indication: NARCOLEPSY
     Dosage: 2.25 G, BID
     Route: 048
     Dates: start: 200307, end: 2003
  20. ASPIRIN. [Concomitant]
     Active Substance: ASPIRIN
  21. NYSTATIN. [Concomitant]
     Active Substance: NYSTATIN
  22. STOOL SOFTENER (DOCUSATE CALCIUM) [Concomitant]
     Active Substance: DOCUSATE CALCIUM
  23. VIAGRA [Concomitant]
     Active Substance: SILDENAFIL CITRATE
  24. BENAZEPRIL [Concomitant]
     Active Substance: BENAZEPRIL HYDROCHLORIDE
  25. DEXTROAMPHET SACCHARAT, AMPHET ASPARTATE, DEXTROAMPHET SULFATE AND AMPHET SULFAT [Concomitant]
     Active Substance: AMPHETAMINE ASPARTATE\AMPHETAMINE SULFATE\DEXTROAMPHETAMINE SACCHARATE\DEXTROAMPHETAMINE SULFATE
  26. DOXYCYCLINE HYCLATE. [Concomitant]
     Active Substance: DOXYCYCLINE HYCLATE
  27. FISH OIL [Concomitant]
     Active Substance: FISH OIL
  28. FERROUS SULFATE. [Concomitant]
     Active Substance: FERROUS SULFATE
  29. TERBINAFINE HCL [Concomitant]
     Active Substance: TERBINAFINE HYDROCHLORIDE
  30. NORCO [Concomitant]
     Active Substance: ACETAMINOPHEN\HYDROCODONE BITARTRATE
  31. HYDROCODONE BITARTRATE AND ACETAMINOPHEN [Concomitant]
     Active Substance: ACETAMINOPHEN\HYDROCODONE BITARTRATE
  32. SULINDAC. [Concomitant]
     Active Substance: SULINDAC
  33. METHOCARBAMOL. [Concomitant]
     Active Substance: METHOCARBAMOL
  34. XYREM [Suspect]
     Active Substance: SODIUM OXYBATE
     Indication: CATAPLEXY
     Dosage: DOSE ADJUSTMENTS
     Route: 048
     Dates: start: 200310, end: 200312
  35. DEXEDRINE SPANSULE [Concomitant]
     Active Substance: DEXTROAMPHETAMINE SULFATE
  36. CITRACAL + D [Concomitant]
     Active Substance: CALCIUM CITRATE\VITAMIN D
  37. MIRAPEX [Concomitant]
     Active Substance: PRAMIPEXOLE DIHYDROCHLORIDE
  38. NATURAL FIBRE LAX                      /00029107/ [Concomitant]
  39. PLAVIX [Concomitant]
     Active Substance: CLOPIDOGREL BISULFATE
  40. RANITIDINE                         /00550802/ [Concomitant]
  41. SPIRONOLACTONE. [Concomitant]
     Active Substance: SPIRONOLACTONE

REACTIONS (5)
  - Depression [Unknown]
  - Blood pressure decreased [Not Recovered/Not Resolved]
  - Drug ineffective [Unknown]
  - Fluid retention [Unknown]
  - Fatigue [Unknown]
